FAERS Safety Report 4932042-1 (Version None)
Quarter: 2006Q1

REPORT INFORMATION
  Report Type: 
  Country: None (occurrence: None)
  Receive Date: 20060303
  Receipt Date: 20060221
  Transmission Date: 20060701
  Serious: Yes (Hospitalization)
  Sender: FDA-Public Use
  Company Number: NL-BRISTOL-MYERS SQUIBB COMPANY-13291141

PATIENT
  Age: 19 Year
  Sex: Female
  Weight: 55 kg

DRUGS (3)
  1. ABILIFY [Suspect]
     Indication: PSYCHOTIC DISORDER
     Route: 048
     Dates: start: 20060207, end: 20060209
  2. LORAZEPAM [Concomitant]
     Dates: start: 20051208
  3. QUETIAPINE [Concomitant]
     Dates: end: 20060207

REACTIONS (4)
  - DYSPNOEA [None]
  - DYSTONIA [None]
  - LARYNGOSPASM [None]
  - TORTICOLLIS [None]
